FAERS Safety Report 25231186 (Version 1)
Quarter: 2025Q2

REPORT INFORMATION
  Report Type: Spontaneous
  Country: CN (occurrence: CN)
  Receive Date: 20250423
  Receipt Date: 20250423
  Transmission Date: 20250717
  Serious: Yes (Hospitalization)
  Sender: ORGANON
  Company Number: CN-ORGANON-O2504CHN002022

PATIENT
  Age: 84 Year
  Sex: Male

DRUGS (3)
  1. SINGULAIR [Suspect]
     Active Substance: MONTELUKAST SODIUM
     Indication: Chronic obstructive pulmonary disease
     Dosage: ORAL, 10MG, QD||
     Route: 048
     Dates: end: 20250328
  2. ENOXAPARIN SODIUM [Suspect]
     Active Substance: ENOXAPARIN SODIUM
     Indication: Chronic obstructive pulmonary disease
     Dosage: SUBCUTANEOUS INJECTION, 4000UNITS, QD||
     Route: 058
     Dates: start: 20250321, end: 20250326
  3. PIPERACILLIN AND TAZOBACTAM [Suspect]
     Active Substance: PIPERACILLIN SODIUM\TAZOBACTAM SODIUM
     Indication: Chronic obstructive pulmonary disease
     Dosage: INTRAVENOUS DRIP, 4.5MG, TID||
     Route: 041
     Dates: start: 20250321, end: 20250326

REACTIONS (3)
  - Platelet count decreased [Unknown]
  - Chronic obstructive pulmonary disease [Not Recovered/Not Resolved]
  - Product use in unapproved indication [Unknown]

NARRATIVE: CASE EVENT DATE: 20250321
